FAERS Safety Report 16852210 (Version 1)
Quarter: 2019Q3

REPORT INFORMATION
  Report Type: Spontaneous
  Country: US (occurrence: US)
  Receive Date: 20190925
  Receipt Date: 20190925
  Transmission Date: 20191005
  Serious: No
  Sender: FDA-Public Use
  Company Number: US-BAUSCH-BL-2019-024782

PATIENT
  Sex: Female

DRUGS (1)
  1. LUMIFY [Suspect]
     Active Substance: BRIMONIDINE TARTRATE
     Indication: PRODUCT USED FOR UNKNOWN INDICATION
     Dosage: IN THE MORNING
     Route: 047
     Dates: start: 2019

REACTIONS (4)
  - Erythema of eyelid [Unknown]
  - Ocular hyperaemia [Unknown]
  - Eyelid pain [Unknown]
  - Eyelid irritation [Unknown]
